FAERS Safety Report 4597431-6 (Version None)
Quarter: 2005Q1

REPORT INFORMATION
  Report Type: 
  Country: None (occurrence: None)
  Receive Date: 20050303
  Receipt Date: 20050228
  Transmission Date: 20050727
  Serious: Yes (Hospitalization)
  Sender: FDA-Public Use
  Company Number: PHNU2005DE01121

PATIENT
  Age: 4 Year
  Sex: Male

DRUGS (4)
  1. TRILEPTAL [Suspect]
     Indication: EPILEPSY
     Dosage: 150 MG, BID
     Route: 048
  2. ERGENYL ^SANOFI-SYNTHELABO^ [Concomitant]
  3. ANAESTHETICS [Concomitant]
  4. ANTIBIOTICS [Concomitant]

REACTIONS (5)
  - CONSTIPATION [None]
  - DYSPEPSIA [None]
  - FOOD AVERSION [None]
  - OXYGEN SATURATION DECREASED [None]
  - VOMITING [None]
